FAERS Safety Report 19140879 (Version 2)
Quarter: 2021Q2

REPORT INFORMATION
  Report Type: Other
  Country: BD (occurrence: BD)
  Receive Date: 20210415
  Receipt Date: 20210518
  Transmission Date: 20210717
  Serious: Yes (Other)
  Sender: FDA-Public Use
  Company Number: BD-ROCHE-2764004

PATIENT
  Age: 51 Year
  Sex: Male
  Weight: 82 kg

DRUGS (5)
  1. AVASTIN [Suspect]
     Active Substance: BEVACIZUMAB
     Indication: HEPATOCELLULAR CARCINOMA
     Route: 042
     Dates: start: 20201017
  2. AVASTIN [Suspect]
     Active Substance: BEVACIZUMAB
     Indication: LIVER DISORDER
  3. REGORAFENIB. [Concomitant]
     Active Substance: REGORAFENIB
  4. TECENTRIQ [Suspect]
     Active Substance: ATEZOLIZUMAB
     Indication: HEPATOCELLULAR CARCINOMA
     Route: 041
     Dates: start: 20201017
  5. TECENTRIQ [Suspect]
     Active Substance: ATEZOLIZUMAB
     Indication: LIVER DISORDER

REACTIONS (4)
  - Rash [Unknown]
  - Drug ineffective [Unknown]
  - Epistaxis [Unknown]
  - Decreased appetite [Unknown]

NARRATIVE: CASE EVENT DATE: 20201030
